FAERS Safety Report 8715844 (Version 5)
Quarter: 2014Q3

REPORT INFORMATION
  Report Type: Report from Study
  Country: PR (occurrence: PR)
  Receive Date: 20120809
  Receipt Date: 20140718
  Transmission Date: 20150326
  Serious: Yes (Other)
  Sender: FDA-Public Use
  Company Number: PR-BAYER-2012-058559

PATIENT
  Age: 65 Year
  Sex: Male

DRUGS (9)
  1. NEXAVAR [Suspect]
     Active Substance: SORAFENIB
     Indication: HEPATIC CANCER
     Dosage: 2 TAB IN AM AND 1 IN PM
     Route: 048
  2. NEXAVAR [Suspect]
     Active Substance: SORAFENIB
     Indication: HEPATIC CANCER
     Dosage: 600 MG DAILY
     Route: 048
  3. NEXAVAR [Suspect]
     Active Substance: SORAFENIB
     Indication: HEPATIC CANCER
     Dosage: 400 MG, BID
     Dates: start: 20120523, end: 20120629
  4. NEXAVAR [Suspect]
     Active Substance: SORAFENIB
     Indication: HEPATIC CANCER
     Dosage: 600 MG DAILY (200 MG Q AM AND 400 MG Q PM)
     Route: 048
  5. NEXAVAR [Suspect]
     Active Substance: SORAFENIB
     Indication: HEPATIC CANCER
     Dosage: 800 MG DAILY DOSE
     Route: 048
     Dates: start: 20120522
  6. NEXAVAR [Suspect]
     Active Substance: SORAFENIB
     Indication: HEPATIC CANCER
     Dosage: 600 MG/DAY
     Route: 048
     Dates: start: 20120522
  7. NEXAVAR [Suspect]
     Active Substance: SORAFENIB
     Indication: HEPATIC CANCER
     Dosage: 200 MG, BID
     Dates: start: 20120713
  8. NEXAVAR [Suspect]
     Active Substance: SORAFENIB
     Indication: HEPATIC CANCER
     Dosage: 600 MG/DAY
     Route: 048
     Dates: start: 20120522
  9. NEXAVAR [Suspect]
     Active Substance: SORAFENIB
     Indication: HEPATIC CANCER
     Dosage: 800 MG DAILY DOSE
     Route: 048

REACTIONS (16)
  - Infection [Recovering/Resolving]
  - Blister [None]
  - Peripheral swelling [None]
  - Skin wound [Not Recovered/Not Resolved]
  - Blister [Recovering/Resolving]
  - Skin discolouration [None]
  - Blister [Not Recovered/Not Resolved]
  - Abasia [Recovering/Resolving]
  - Disorientation [None]
  - Skin disorder [None]
  - Laboratory test abnormal [Not Recovered/Not Resolved]
  - Wound [Recovering/Resolving]
  - Subcutaneous abscess [Recovered/Resolved]
  - Skin lesion [Recovering/Resolving]
  - Ammonia increased [None]
  - Pain in extremity [None]

NARRATIVE: CASE EVENT DATE: 201205
